FAERS Safety Report 16526736 (Version 1)
Quarter: 2019Q3

REPORT INFORMATION
  Report Type: Spontaneous
  Country: JP (occurrence: JP)
  Receive Date: 20190704
  Receipt Date: 20190704
  Transmission Date: 20191004
  Serious: Yes (Death, Other)
  Sender: FDA-Public Use
  Company Number: JP-AMGEN-JPNSP2019106127

PATIENT
  Age: 55 Year
  Sex: Male

DRUGS (2)
  1. IRESSA [Concomitant]
     Active Substance: GEFITINIB
     Dosage: UNK
     Route: 065
  2. RANMARK [Suspect]
     Active Substance: DENOSUMAB
     Indication: METASTASES TO BONE
     Dosage: UNK
     Route: 065

REACTIONS (3)
  - General physical health deterioration [Fatal]
  - Fistula [Not Recovered/Not Resolved]
  - Resorption bone increased [Unknown]
